FAERS Safety Report 18803060 (Version 5)
Quarter: 2025Q3

REPORT INFORMATION
  Report Type: Spontaneous
  Country: EU (occurrence: EU)
  Receive Date: 20210129
  Receipt Date: 20250722
  Transmission Date: 20251020
  Serious: Yes (Hospitalization, Other)
  Sender: AUROBINDO
  Company Number: EU-ORION CORPORATION ORION PHARMA-METO2021-0002

PATIENT
  Age: 29 Year
  Sex: Female

DRUGS (5)
  1. METOPROLOL [Suspect]
     Active Substance: METOPROLOL
     Indication: Blood pressure measurement
     Dosage: 25 MILLIGRAM, TWO TIMES A DAY
     Route: 065
  2. EPLERENONE [Suspect]
     Active Substance: EPLERENONE
     Indication: Product used for unknown indication
     Dosage: 50 MILLIGRAM, ONCE A DAY
     Route: 065
  3. GADOLINIUM [Suspect]
     Active Substance: GADOLINIUM
     Indication: Product used for unknown indication
     Route: 065
  4. METHYLDOPA [Suspect]
     Active Substance: METHYLDOPA
     Indication: Gestational hypertension
     Dosage: 20 MILLIGRAM, 3 TIMES A DAY
     Route: 065
  5. POTASSIUM [Suspect]
     Active Substance: POTASSIUM
     Indication: Hypokalaemia
     Route: 065

REACTIONS (6)
  - Adrenal gland cancer [Unknown]
  - Urinary tract infection [Unknown]
  - Blood pressure increased [Unknown]
  - Premature delivery [Unknown]
  - Maternal exposure during pregnancy [Recovered/Resolved]
  - Exposure during pregnancy [Recovered/Resolved]
